FAERS Safety Report 21259362 (Version 1)
Quarter: 2022Q3

REPORT INFORMATION
  Report Type: Spontaneous
  Country: US (occurrence: None)
  Receive Date: 20220825
  Receipt Date: 20220825
  Transmission Date: 20221027
  Serious: Yes (Other)
  Sender: FDA-Public Use
  Company Number: None

PATIENT
  Age: 43 Year
  Sex: Female
  Weight: 53.98 kg

DRUGS (12)
  1. BROMOCRIPTINE [Suspect]
     Active Substance: BROMOCRIPTINE
     Indication: Hyperprolactinaemia
     Dosage: FREQUENCY : DAILY;?
     Route: 048
     Dates: start: 20210608, end: 20220504
  2. RISPERIDONE [Concomitant]
     Active Substance: RISPERIDONE
     Dates: start: 20200707
  3. TRAZODONE [Concomitant]
     Active Substance: TRAZODONE HYDROCHLORIDE
     Dates: start: 20200707
  4. NALTREXONE [Concomitant]
     Active Substance: NALTREXONE
     Dates: start: 20210330, end: 20220621
  5. VALPROIC ACID [Concomitant]
     Active Substance: VALPROIC ACID
     Dates: start: 20210622, end: 20211215
  6. OMEPRAZOLE [Concomitant]
     Active Substance: OMEPRAZOLE
     Dates: start: 20210729
  7. LEVOTHYROXINE [Concomitant]
     Active Substance: LEVOTHYROXINE
     Dates: start: 20200707
  8. DOCUSATE [Concomitant]
     Active Substance: DOCUSATE
     Dates: start: 20200707
  9. FLUTICASONE [Concomitant]
     Active Substance: FLUTICASONE
     Dates: start: 20200707
  10. FAMOTIDINE [Concomitant]
     Active Substance: FAMOTIDINE
     Dates: start: 20210618
  11. CHOLECALCIFEROL [Concomitant]
     Active Substance: CHOLECALCIFEROL
     Dates: start: 20200813
  12. CETIRIZINE [Concomitant]
     Active Substance: CETIRIZINE HYDROCHLORIDE
     Dates: start: 20200708

REACTIONS (5)
  - Anaemia [None]
  - Gastrointestinal haemorrhage [None]
  - Reactive gastropathy [None]
  - Reflux gastritis [None]
  - Occult blood positive [None]

NARRATIVE: CASE EVENT DATE: 20220331
